FAERS Safety Report 4727122-X (Version None)
Quarter: 2005Q3

REPORT INFORMATION
  Report Type: 
  Country: None (occurrence: None)
  Receive Date: 20050726
  Receipt Date: 20050726
  Transmission Date: 20060218
  Serious: Yes (Other)
  Sender: FDA-Public Use
  Company Number: None

PATIENT
  Age: 56 Year
  Sex: Male
  Weight: 85.7 kg

DRUGS (10)
  1. ZOCOR [Suspect]
  2. SERTRALINE HCL [Concomitant]
  3. TRAZODONE HCL [Concomitant]
  4. QUETIAPINE FUMARATE [Concomitant]
  5. CIPROFLOXACIN [Concomitant]
  6. METRONIDAZOLE [Concomitant]
  7. SIMVASTATIN [Concomitant]
  8. RABEPRAZOLE SODIUM [Concomitant]
  9. TAMULOSIN HCL [Concomitant]
  10. CITALOPRAM HYDROBROMIDE [Concomitant]

REACTIONS (1)
  - MYALGIA [None]
